FAERS Safety Report 9242693 (Version 4)
Quarter: 2013Q2

REPORT INFORMATION
  Report Type: Spontaneous
  Country: JP (occurrence: JP)
  Receive Date: 20130419
  Receipt Date: 20130614
  Transmission Date: 20140414
  Serious: Yes (Other)
  Sender: FDA-Public Use
  Company Number: JP-ROCHE-1215870

PATIENT
  Age: 70 Year
  Sex: Male

DRUGS (4)
  1. DENOSINE [Suspect]
     Indication: CYTOMEGALOVIRUS COLITIS
     Route: 041
     Dates: start: 20130311
  2. DENOSINE [Suspect]
     Route: 041
     Dates: start: 20130318
  3. DENOSINE [Suspect]
     Route: 041
     Dates: start: 20130327, end: 20130414
  4. PROGRAF [Suspect]
     Indication: PRODUCT USED FOR UNKNOWN INDICATION
     Route: 048
     Dates: start: 20130414

REACTIONS (2)
  - Bone marrow failure [Recovering/Resolving]
  - Pancytopenia [Recovered/Resolved]
